FAERS Safety Report 4626024-7 (Version None)
Quarter: 2005Q2

REPORT INFORMATION
  Report Type: 
  Country: None (occurrence: None)
  Receive Date: 20050404
  Receipt Date: 20050323
  Transmission Date: 20051028
  Serious: Yes (Other)
  Sender: FDA-Public Use
  Company Number: US-JNJFOC-20050306443

PATIENT
  Sex: Female

DRUGS (2)
  1. TYLENOL (CAPLET) [Suspect]
     Route: 049
  2. TYLENOL (CAPLET) [Suspect]
     Indication: ARTHRITIS
     Route: 049

REACTIONS (5)
  - APHASIA [None]
  - AURICULAR SWELLING [None]
  - DEAFNESS [None]
  - SWOLLEN TONGUE [None]
  - URTICARIA [None]
